FAERS Safety Report 7449796-5 (Version None)
Quarter: 2011Q2

REPORT INFORMATION
  Report Type: 
  Country: None (occurrence: None)
  Receive Date: 20110428
  Receipt Date: 20110428
  Transmission Date: 20111010
  Serious: Yes (Other)
  Sender: FDA-Public Use
  Company Number: None

PATIENT
  Sex: Female
  Weight: 99.7913 kg

DRUGS (1)
  1. CEPHALEXIN [Suspect]
     Indication: DIABETIC FOOT
     Dosage: PO
     Route: 048
     Dates: start: 20061224, end: 20061225

REACTIONS (16)
  - DRUG HYPERSENSITIVITY [None]
  - PRURITUS [None]
  - PRODUCT SUBSTITUTION ISSUE [None]
  - NAUSEA [None]
  - DYSPEPSIA [None]
  - FLUID RETENTION [None]
  - CONFUSIONAL STATE [None]
  - DISORIENTATION [None]
  - HALLUCINATION, VISUAL [None]
  - DYSPNOEA [None]
  - CHEST DISCOMFORT [None]
  - DIARRHOEA [None]
  - VERTIGO [None]
  - HEADACHE [None]
  - DIZZINESS [None]
  - DIPLOPIA [None]
